FAERS Safety Report 7227157-1 (Version None)
Quarter: 2011Q1

REPORT INFORMATION
  Report Type: 
  Country: None (occurrence: None)
  Receive Date: 20110114
  Receipt Date: 20110110
  Transmission Date: 20110831
  Serious: No
  Sender: FDA-Public Use
  Company Number: US-ROCHE-752890

PATIENT
  Sex: Female

DRUGS (1)
  1. TAMIFLU [Suspect]
     Route: 048
     Dates: start: 20110110

REACTIONS (3)
  - OVERDOSE [None]
  - NO ADVERSE EVENT [None]
  - DRUG ADMINISTRATION ERROR [None]
